FAERS Safety Report 21496201 (Version 1)
Quarter: 2022Q4

REPORT INFORMATION
  Report Type: Report from Study
  Country: US (occurrence: US)
  Receive Date: 20221022
  Receipt Date: 20221022
  Transmission Date: 20230113
  Serious: No
  Sender: FDA-Public Use
  Company Number: US-ABBVIE-4131506

PATIENT
  Sex: Female

DRUGS (12)
  1. IMBRUVICA [Suspect]
     Active Substance: IBRUTINIB
     Indication: Chronic lymphocytic leukaemia
     Route: 048
     Dates: start: 20220908
  2. 325 mg Acetaminophen [Concomitant]
     Indication: Product used for unknown indication
     Route: 048
  3. 10 mg Atorvastatin calcium [Concomitant]
     Indication: Product used for unknown indication
     Route: 048
  4. MINERALS\VITAMINS [Concomitant]
     Active Substance: MINERALS\VITAMINS
     Indication: Product used for unknown indication
     Route: 048
  5. 100 mg Losartan potassium [Concomitant]
     Indication: Product used for unknown indication
     Route: 048
  6. ASPIRIN [Concomitant]
     Active Substance: ASPIRIN
     Indication: Product used for unknown indication
     Route: 048
  7. Cbdfx hemp gummie [Concomitant]
     Indication: Product used for unknown indication
  8. LACTOBACILLUS ACIDOPHILUS [Concomitant]
     Active Substance: LACTOBACILLUS ACIDOPHILUS
     Indication: Product used for unknown indication
  9. 100 mg Allopurinol [Concomitant]
     Indication: Product used for unknown indication
     Route: 048
  10. 50 mg Tramadol HCL [Concomitant]
     Indication: Product used for unknown indication
     Route: 048
  11. LEVOTHYROXINE SODIUM [Concomitant]
     Active Substance: LEVOTHYROXINE SODIUM
     Indication: Product used for unknown indication
     Dosage: 10
     Route: 048
  12. Imbruvica 420 mg Tablet [Concomitant]
     Indication: Product used for unknown indication
     Route: 048

REACTIONS (2)
  - Oral pain [Not Recovered/Not Resolved]
  - Stomatitis [Unknown]

NARRATIVE: CASE EVENT DATE: 20220101
